FAERS Safety Report 25180689 (Version 4)
Quarter: 2025Q2

REPORT INFORMATION
  Report Type: Report from Study
  Country: BE (occurrence: BE)
  Receive Date: 20250409
  Receipt Date: 20250512
  Transmission Date: 20250717
  Serious: Yes (Hospitalization)
  Sender: DAIICHI
  Company Number: BE-DSJP-DS-2025-133713-BE

PATIENT
  Age: 51 Year
  Sex: Female
  Weight: 65.5 kg

DRUGS (14)
  1. ENHERTU [Suspect]
     Active Substance: FAM-TRASTUZUMAB DERUXTECAN-NXKI
     Indication: HER2 low breast cancer
     Route: 065
     Dates: start: 20250220, end: 20250506
  2. ENHERTU [Suspect]
     Active Substance: FAM-TRASTUZUMAB DERUXTECAN-NXKI
     Indication: Breast cancer metastatic
  3. TRESIBA [Concomitant]
     Active Substance: INSULIN DEGLUDEC
     Indication: Diabetes mellitus
     Dosage: UNK UNK, QD (24 E, DAILY)
     Route: 058
     Dates: start: 202008
  4. NOVORAPID [Concomitant]
     Active Substance: INSULIN ASPART
     Indication: Diabetes mellitus
     Dosage: UNK UNK, BID (24 KIR 10 TWICE PER DAY)
     Route: 058
     Dates: start: 200712
  5. FIASP [Concomitant]
     Active Substance: INSULIN ASPART
     Indication: Diabetes mellitus
     Dosage: UNK UNK, QD (1 E, DAILY)
     Route: 058
     Dates: start: 20250109
  6. ATORVASTATIN [Concomitant]
     Active Substance: ATORVASTATIN
     Indication: Hypercholesterolaemia
     Dosage: 20 MG, QD (20 MG, DAILY)
     Route: 048
     Dates: start: 20210316
  7. CALCIUM CARBONATE\CHOLECALCIFEROL [Concomitant]
     Active Substance: CALCIUM CARBONATE\CHOLECALCIFEROL
     Indication: Supplementation therapy
     Dosage: 1 DOSAGE FORM, QD (1 TABLET DAILY)
     Route: 048
     Dates: start: 202103
  8. FERROUS SULFATE [Concomitant]
     Active Substance: FERROUS SULFATE
     Indication: Supplementation therapy
     Dosage: 20 DOSAGE FORM, ONCE EVERY 1 WK (2 TABLETS, EVERY WEEK)
     Route: 048
     Dates: start: 201305, end: 20250328
  9. VITAMIN D3 [Concomitant]
     Active Substance: CHOLECALCIFEROL
     Indication: Supplementation therapy
     Dosage: 1 DOSAGE FORM, ONCE EVERY 1 MO (1 CAPSULE MONTHLY)
     Route: 048
     Dates: start: 201305
  10. ACETAMINOPHEN [Concomitant]
     Active Substance: ACETAMINOPHEN
     Indication: Pain
     Route: 048
     Dates: start: 20250202
  11. TRAMADOL [Concomitant]
     Active Substance: TRAMADOL
     Indication: Pain
     Dosage: 100 MG, BID
     Route: 048
     Dates: start: 20250206, end: 20250310
  12. MOUTH WASH [Concomitant]
     Indication: Prophylaxis
     Route: 048
     Dates: start: 20250327
  13. MOUTH WASH [Concomitant]
     Indication: Mucosal inflammation
  14. ENOXAPARIN SODIUM [Concomitant]
     Active Substance: ENOXAPARIN SODIUM
     Indication: Thrombosis prophylaxis
     Dosage: 40000 IU, QD
     Route: 058
     Dates: start: 20250328, end: 20250403

REACTIONS (12)
  - Lymphoedema [Recovered/Resolved]
  - Diarrhoea [Not Recovered/Not Resolved]
  - Vomiting [Not Recovered/Not Resolved]
  - Nausea [Not Recovered/Not Resolved]
  - Alopecia [Not Recovered/Not Resolved]
  - Diarrhoea [Recovered/Resolved]
  - Lymphoedema [Recovered/Resolved]
  - Haemorrhoids [Recovered/Resolved with Sequelae]
  - Hypokalaemia [Recovered/Resolved]
  - Atypical mycobacterial infection [Recovered/Resolved]
  - Cough [Not Recovered/Not Resolved]
  - Cough [Not Recovered/Not Resolved]

NARRATIVE: CASE EVENT DATE: 20200901
